FAERS Safety Report 6539893-0 (Version None)
Quarter: 2010Q1

REPORT INFORMATION
  Report Type: 
  Country: None (occurrence: None)
  Receive Date: 20100113
  Receipt Date: 20090505
  Transmission Date: 20100710
  Serious: Yes (Other)
  Sender: FDA-Public Use
  Company Number: 09-000722

PATIENT
  Age: 29 Year
  Sex: Female
  Weight: 56.7 kg

DRUGS (2)
  1. FEMCON FE [Suspect]
     Indication: CONTRACEPTION
     Dosage: 0.4MG/35MCG, QD, ORAL
     Route: 048
     Dates: start: 20090424, end: 20090504
  2. MIRENA [Concomitant]

REACTIONS (4)
  - MIGRAINE [None]
  - NAUSEA [None]
  - PRURITUS GENERALISED [None]
  - VOMITING [None]
